FAERS Safety Report 10055769 (Version 1)
Quarter: 2014Q2

REPORT INFORMATION
  Report Type: Spontaneous
  Country: US (occurrence: None)
  Receive Date: 20140402
  Receipt Date: 20140402
  Transmission Date: 20141212
  Serious: Yes (Other)
  Sender: FDA-Public Use
  Company Number: None

PATIENT
  Age: 85 Year
  Sex: Male
  Weight: 79 kg

DRUGS (14)
  1. VANCOMYCIN [Suspect]
     Dates: start: 20140314, end: 20140315
  2. ZOSYN [Suspect]
     Dates: start: 20140314, end: 20140319
  3. ALPRAZOLAM [Concomitant]
  4. HEPARIN [Concomitant]
  5. LEVOFLOXACIN [Concomitant]
  6. ASPIRIN [Concomitant]
  7. FUROSEMIDE [Concomitant]
  8. INSULIN DETEMIR [Concomitant]
  9. METOPROLOL TARTRATE [Concomitant]
  10. AMLODIPINE [Concomitant]
  11. ZETIA [Concomitant]
  12. TYLENOL [Concomitant]
  13. ZOLPIDEM [Concomitant]
  14. HYDRALAZINE [Concomitant]

REACTIONS (2)
  - Renal failure acute [None]
  - Drug interaction [None]
